FAERS Safety Report 4744534-9 (Version None)
Quarter: 2005Q3

REPORT INFORMATION
  Report Type: 
  Country: None (occurrence: None)
  Receive Date: 20050808
  Receipt Date: 20040729
  Transmission Date: 20060218
  Serious: Yes (Other)
  Sender: FDA-Public Use
  Company Number: US-JNJFOC-20040708239

PATIENT
  Age: 20 Year
  Sex: Female
  Weight: 77.1115 kg

DRUGS (1)
  1. EXTRA STRENGTH TYLENOL [Suspect]
     Indication: DRUG USE FOR UNKNOWN INDICATION
     Dosage: 37,500 TO 50, 000 MG
     Dates: start: 20040729, end: 20040729

REACTIONS (1)
  - INTENTIONAL MISUSE [None]
